FAERS Safety Report 18695423 (Version 1)
Quarter: 2021Q1

REPORT INFORMATION
  Report Type: Spontaneous
  Country: US (occurrence: US)
  Receive Date: 20210103
  Receipt Date: 20210103
  Transmission Date: 20210419
  Serious: Yes (Disabling)
  Sender: FDA-Public Use
  Company Number: None

PATIENT
  Age: 33 Year
  Sex: Female

DRUGS (1)
  1. DEXTROAMPHET SACCHARAT, AMPHET ASPARTATE, DEXTROAMPHET SULFATE AND AMPHET SULFAT [Suspect]
     Active Substance: AMPHETAMINE ASPARTATE\AMPHETAMINE SULFATE\DEXTROAMPHETAMINE SACCHARATE\DEXTROAMPHETAMINE SULFATE
     Dosage: ?          QUANTITY:2 CAPSULE(S);?
     Route: 048

REACTIONS (10)
  - Lethargy [None]
  - Fatigue [None]
  - Treatment failure [None]
  - Product tampering [None]
  - Malaise [None]
  - Drug ineffective [None]
  - Disturbance in attention [None]
  - Product substitution issue [None]
  - Bedridden [None]
  - Nausea [None]

NARRATIVE: CASE EVENT DATE: 20210101
